FAERS Safety Report 5062823-8 (Version None)
Quarter: 2006Q3

REPORT INFORMATION
  Report Type: 
  Country: None (occurrence: None)
  Receive Date: 20060724
  Receipt Date: 20060724
  Transmission Date: 20061208
  Serious: Yes (Hospitalization)
  Sender: FDA-Public Use
  Company Number: None

PATIENT
  Age: 84 Year
  Sex: Male
  Weight: 62 kg

DRUGS (11)
  1. ALENDRONATE SODIUM [Suspect]
     Indication: OSTEOPOROSIS
     Dosage: 70MG WEEKLY PO
     Route: 048
     Dates: start: 20040608, end: 20060423
  2. ALBUTEROL SPIROS [Concomitant]
  3. ASPIRIN [Concomitant]
  4. CALCIUM CARBONATE [Concomitant]
  5. LANOXIN [Concomitant]
  6. FLUNISOLIDE [Concomitant]
  7. FORMOTEROL [Concomitant]
  8. HYDROCHLOROTHIAZIDE [Concomitant]
  9. IPRATROPIUM BROMIDE [Concomitant]
  10. LOSARTAN POSTASSIUM [Concomitant]
  11. MULTIVITAMINS/MINERALS [Concomitant]

REACTIONS (5)
  - DYSPHAGIA [None]
  - OESOPHAGEAL FOOD IMPACTION [None]
  - OESOPHAGEAL RUPTURE [None]
  - OESOPHAGEAL STENOSIS [None]
  - OESOPHAGITIS [None]
